FAERS Safety Report 7413019-3 (Version None)
Quarter: 2011Q2

REPORT INFORMATION
  Report Type: 
  Country: None (occurrence: None)
  Receive Date: 20110413
  Receipt Date: 20110410
  Transmission Date: 20111010
  Serious: Yes (Hospitalization, Other)
  Sender: FDA-Public Use
  Company Number: US-B.I. PHARMACEUTICALS,INC./RIDGEFIELD-2011-BP-10401BP

PATIENT
  Sex: Male

DRUGS (8)
  1. SPIRIVA [Suspect]
     Indication: EMPHYSEMA
     Dosage: 18 MCG
     Route: 055
     Dates: start: 20101001, end: 20110405
  2. ASMANEX TWISTHALER [Suspect]
     Indication: ASTHMA
     Dosage: 2 PUF
     Route: 055
     Dates: start: 20080101
  3. XOPENEX [Concomitant]
     Indication: ASTHMA
     Route: 055
     Dates: start: 20100801
  4. PREDNISONE [Concomitant]
     Indication: ASTHMA
     Dosage: 20MG X4D, 15MGX3D, 10MGX3D, 5MGX3D
     Route: 048
     Dates: start: 20090101
  5. SPIRIVA [Suspect]
     Indication: CHRONIC OBSTRUCTIVE PULMONARY DISEASE
  6. MAXAIR [Concomitant]
     Indication: ASTHMA
     Route: 055
     Dates: start: 20060101
  7. SINGULAIR [Concomitant]
     Indication: ASTHMA
     Dosage: 10 MG
     Route: 048
     Dates: start: 20020101
  8. ATROVENT [Concomitant]
     Indication: ASTHMA
     Route: 055
     Dates: start: 20090101

REACTIONS (12)
  - PNEUMONIA [None]
  - CHOKING [None]
  - SUFFOCATION FEELING [None]
  - DISCOMFORT [None]
  - COUGH [None]
  - BRONCHITIS [None]
  - LOSS OF CONSCIOUSNESS [None]
  - RESPIRATORY DISTRESS [None]
  - INSOMNIA [None]
  - SKIN DISCOLOURATION [None]
  - CYANOSIS [None]
  - OXYGEN CONSUMPTION DECREASED [None]
